FAERS Safety Report 6508127-5 (Version None)
Quarter: 2009Q4

REPORT INFORMATION
  Report Type: 
  Country: None (occurrence: None)
  Receive Date: 20091201
  Receipt Date: 20090508
  Transmission Date: 20100525
  Serious: Yes (Hospitalization)
  Sender: FDA-Public Use
  Company Number: 2009-196434-NL

PATIENT
  Age: 44 Year
  Sex: Female
  Weight: 90.7 kg

DRUGS (8)
  1. NUVARING [Suspect]
     Indication: CONTRACEPTION
     Dates: start: 20090101, end: 20090430
  2. ZOLOFT [Concomitant]
  3. WELLBUTRIN [Concomitant]
  4. AVELOX [Concomitant]
  5. COLD MEDICATION [Concomitant]
  6. MUCINEX [Concomitant]
  7. FLUTICASONE PROPIONATE [Concomitant]
  8. ASPIRIN [Concomitant]

REACTIONS (1)
  - CEREBROVASCULAR ACCIDENT [None]
